FAERS Safety Report 22953629 (Version 3)
Quarter: 2024Q2

REPORT INFORMATION
  Report Type: Spontaneous
  Country: CA (occurrence: CA)
  Receive Date: 20230918
  Receipt Date: 20240409
  Transmission Date: 20240716
  Serious: Yes (Other)
  Sender: FDA-Public Use
  Company Number: CA-PFIZER INC-202300301026

PATIENT
  Age: 53 Year
  Sex: Female

DRUGS (4)
  1. LIDOCAINE HYDROCHLORIDE [Suspect]
     Active Substance: LIDOCAINE HYDROCHLORIDE
     Indication: Toxicity to various agents
     Dosage: 3 MG/KG, PER HR  FOR 6 HOURS
  2. LIDOCAINE HYDROCHLORIDE [Suspect]
     Active Substance: LIDOCAINE HYDROCHLORIDE
     Dosage: 2 MG/KG, PER HR  FOR A FURTHER 14 HOURS
  3. LIDOCAINE HYDROCHLORIDE [Suspect]
     Active Substance: LIDOCAINE HYDROCHLORIDE
     Dosage: 1 MG/KG, PER HR
  4. SODIUM BICARBONATE [Concomitant]
     Active Substance: SODIUM BICARBONATE
     Indication: Toxicity to various agents
     Dosage: INFUSION

REACTIONS (3)
  - Clonus [Recovered/Resolved]
  - Local anaesthetic systemic toxicity [Recovered/Resolved]
  - Off label use [Unknown]
